FAERS Safety Report 12114799 (Version 1)
Quarter: 2016Q1

REPORT INFORMATION
  Report Type: Spontaneous
  Country: US (occurrence: US)
  Receive Date: 20160225
  Receipt Date: 20160225
  Transmission Date: 20160526
  Serious: Yes (Hospitalization)
  Sender: FDA-Public Use
  Company Number: US-JNJFOC-20160215046

PATIENT
  Age: 19 Year
  Sex: Male

DRUGS (5)
  1. RISPERDAL CONSTA [Suspect]
     Active Substance: RISPERIDONE
     Indication: PSYCHOTIC DISORDER
     Route: 030
  2. TOPAMAX [Concomitant]
     Active Substance: TOPIRAMATE
     Indication: MIGRAINE
     Route: 065
  3. RISPERDAL CONSTA [Suspect]
     Active Substance: RISPERIDONE
     Indication: PSYCHOTIC DISORDER
     Route: 030
  4. RISPERIDONE. [Suspect]
     Active Substance: RISPERIDONE
     Indication: PSYCHOTIC DISORDER
     Route: 048
  5. VALPROIC ACID. [Suspect]
     Active Substance: VALPROIC ACID
     Indication: DRUG THERAPY
     Route: 065

REACTIONS (3)
  - Treatment noncompliance [Unknown]
  - Aggression [Not Recovered/Not Resolved]
  - Hallucination, auditory [Not Recovered/Not Resolved]
